FAERS Safety Report 16842703 (Version 1)
Quarter: 2019Q3

REPORT INFORMATION
  Report Type: Spontaneous
  Country: US (occurrence: US)
  Receive Date: 20190924
  Receipt Date: 20190924
  Transmission Date: 20191005
  Serious: No
  Sender: FDA-Public Use
  Company Number: US-ELI_LILLY_AND_COMPANY-US201909009637

PATIENT
  Sex: Female

DRUGS (1)
  1. BASAGLAR [Suspect]
     Active Substance: INSULIN GLARGINE
     Indication: TYPE 1 DIABETES MELLITUS
     Dosage: 8 U, UNKNOWN
     Route: 058

REACTIONS (3)
  - Blood glucose increased [Unknown]
  - Glycosylated haemoglobin increased [Unknown]
  - Product dose omission [Not Recovered/Not Resolved]
